FAERS Safety Report 13424857 (Version 3)
Quarter: 2018Q1

REPORT INFORMATION
  Report Type: Spontaneous
  Country: US (occurrence: US)
  Receive Date: 20170410
  Receipt Date: 20180110
  Transmission Date: 20180508
  Serious: No
  Sender: FDA-Public Use
  Company Number: US-LUNDBECK-DKLU2028447

PATIENT
  Sex: Female

DRUGS (3)
  1. NORTHERA [Suspect]
     Active Substance: DROXIDOPA
     Route: 065
  2. NORTHERA [Suspect]
     Active Substance: DROXIDOPA
     Indication: PRODUCT USED FOR UNKNOWN INDICATION
     Dosage: SCHEDULE B
     Route: 065
     Dates: start: 20170313
  3. NORTHERA [Suspect]
     Active Substance: DROXIDOPA

REACTIONS (9)
  - Heart rate increased [Unknown]
  - Gastrointestinal pain [Unknown]
  - Malaise [Unknown]
  - Dizziness [Unknown]
  - Abdominal pain upper [Unknown]
  - Asthenia [Unknown]
  - Headache [Unknown]
  - Decreased appetite [Unknown]
  - Nausea [Unknown]
